FAERS Safety Report 7864748-9 (Version None)
Quarter: 2011Q4

REPORT INFORMATION
  Report Type: 
  Country: None (occurrence: None)
  Receive Date: 20111028
  Receipt Date: 20111021
  Transmission Date: 20120403
  Serious: Yes (Death)
  Sender: FDA-Public Use
  Company Number: IT-ELI_LILLY_AND_COMPANY-IT201001002087

PATIENT
  Sex: Male
  Weight: 71 kg

DRUGS (4)
  1. ATOMOXETINE HCL [Suspect]
     Dosage: 100 MG, DAILY (1/D)
     Route: 048
     Dates: start: 20090704
  2. ATOMOXETINE HCL [Suspect]
     Dosage: 80 MG, DAILY (1/D)
     Route: 048
     Dates: start: 20090622, end: 20090704
  3. ATOMOXETINE HCL [Suspect]
     Dosage: VISIT 7-17, PERIOD III
     Dates: start: 20090904
  4. ATOMOXETINE HCL [Suspect]
     Indication: ATTENTION DEFICIT/HYPERACTIVITY DISORDER
     Dosage: 40 MG, DAILY (1/D)
     Route: 048
     Dates: start: 20090606, end: 20090622

REACTIONS (1)
  - MYOCARDIAL INFARCTION [None]
